FAERS Safety Report 8339388-8 (Version None)
Quarter: 2012Q2

REPORT INFORMATION
  Report Type: 
  Country: None (occurrence: None)
  Receive Date: 20120507
  Receipt Date: 20120427
  Transmission Date: 20120825
  Serious: Yes (Hospitalization)
  Sender: FDA-Public Use
  Company Number: US-BAYER-2011-075051

PATIENT
  Age: 24 Year
  Sex: Female
  Weight: 61.224 kg

DRUGS (1)
  1. YAZ [Suspect]
     Indication: PREMENSTRUAL SYNDROME
     Dosage: UNK
     Dates: start: 20070301, end: 20080301

REACTIONS (5)
  - HEPATIC FUNCTION ABNORMAL [None]
  - PANCREATITIS [None]
  - INJURY [None]
  - GALLBLADDER DISORDER [None]
  - LIVER INJURY [None]
